FAERS Safety Report 13255005 (Version 6)
Quarter: 2017Q3

REPORT INFORMATION
  Report Type: Spontaneous
  Country: US (occurrence: US)
  Receive Date: 20170221
  Receipt Date: 20170829
  Transmission Date: 20171127
  Serious: Yes (Other)
  Sender: FDA-Public Use
  Company Number: PHEH2017US005048

PATIENT
  Age: 33 Year
  Sex: Female
  Weight: 81.63 kg

DRUGS (3)
  1. ZOFRAN [Suspect]
     Active Substance: ONDANSETRON HYDROCHLORIDE
     Indication: PRODUCT USED FOR UNKNOWN INDICATION
     Dosage: 04 MG, Q8H
     Route: 048
  2. ONDANSETRON [Suspect]
     Active Substance: ONDANSETRON
     Indication: VOMITING IN PREGNANCY
     Dosage: 04 MG, Q8H
     Route: 065
     Dates: start: 201408
  3. ZOFRAN ODT [Suspect]
     Active Substance: ONDANSETRON HYDROCHLORIDE
     Indication: PRODUCT USED FOR UNKNOWN INDICATION
     Dosage: 04 MG, Q4H
     Route: 048

REACTIONS (19)
  - Suppressed lactation [Unknown]
  - Lymphadenopathy [Unknown]
  - Premature rupture of membranes [Unknown]
  - Placental transfusion syndrome [Unknown]
  - Chronic tonsillitis [Unknown]
  - Premature delivery [Unknown]
  - Maternal exposure during pregnancy [Unknown]
  - Injury [Unknown]
  - Depression [Unknown]
  - Rhinitis [Unknown]
  - Emotional distress [Unknown]
  - Vaginal haemorrhage [Unknown]
  - Alopecia [Unknown]
  - Retained placenta or membranes [Unknown]
  - Abdominal pain [Unknown]
  - Diarrhoea [Unknown]
  - Acne [Unknown]
  - Anxiety [Unknown]
  - Product use issue [Unknown]

NARRATIVE: CASE EVENT DATE: 20150211
